FAERS Safety Report 6041947-2 (Version None)
Quarter: 2009Q1

REPORT INFORMATION
  Report Type: 
  Country: None (occurrence: None)
  Receive Date: 20090116
  Receipt Date: 20090105
  Transmission Date: 20090719
  Serious: Yes (Hospitalization)
  Sender: FDA-Public Use
  Company Number: GB-ROCHE-606173

PATIENT
  Sex: Female

DRUGS (3)
  1. CAPECITABINE [Suspect]
     Indication: BREAST CANCER
     Dosage: GIVEN FOR FOUR CYCLES. THE TREATMENT WAS NOT STOPPED BUT WAS DELAYED DUE TO THE EVENT.
     Route: 048
     Dates: start: 20080905
  2. EPIRUBICIN [Suspect]
     Indication: BREAST CANCER
     Dosage: GIVEN FOR FOUR CYCLES. THE TREATMENT WAS NOT STOPPED BUT WAS DELAYED DUE TO THE EVENT.
     Route: 042
     Dates: start: 20080905
  3. NEULASTA [Suspect]
     Indication: BREAST CANCER
     Dosage: GIVEN FOR FOUR CYCLES. THE TREATMENT WAS NOT STOPPED BUT WAS DELAYED DUE TO THE EVENT.
     Route: 065
     Dates: start: 20080905

REACTIONS (4)
  - DIARRHOEA [None]
  - NEUTROPENIA [None]
  - OBSTRUCTION [None]
  - PYREXIA [None]
